FAERS Safety Report 5686171-8 (Version None)
Quarter: 2008Q1

REPORT INFORMATION
  Report Type: 
  Country: None (occurrence: None)
  Receive Date: 20080328
  Receipt Date: 20070914
  Transmission Date: 20080703
  Serious: Yes (Other)
  Sender: FDA-Public Use
  Company Number: US-BAYER-US-2007-030516

PATIENT
  Age: 19 Year
  Sex: Female
  Weight: 71 kg

DRUGS (4)
  1. MIRENA [Suspect]
     Indication: CONTRACEPTION
     Route: 015
     Dates: start: 20070223, end: 20070710
  2. CLARITIN [Concomitant]
     Dosage: UNIT DOSE: 10 MG
     Route: 048
  3. ELIDEL [Concomitant]
  4. CENOGEN ULTRA [Concomitant]
     Route: 051

REACTIONS (1)
  - IUD MIGRATION [None]
